FAERS Safety Report 5605175-4 (Version None)
Quarter: 2008Q1

REPORT INFORMATION
  Report Type: 
  Country: None (occurrence: None)
  Receive Date: 20080128
  Receipt Date: 20080117
  Transmission Date: 20080703
  Serious: Yes (Hospitalization)
  Sender: FDA-Public Use
  Company Number: FR-PFIZER INC-2008005935

PATIENT
  Sex: Female

DRUGS (10)
  1. TAHOR [Suspect]
     Route: 048
     Dates: start: 20070416, end: 20070704
  2. KARDEGIC [Suspect]
     Route: 048
  3. DI-ANTALVIC [Suspect]
     Dosage: TEXT:6 DF-FREQ:DAILY
     Route: 048
  4. SECTRAL [Suspect]
     Dosage: TEXT:1 DF-FREQ:DAILY
     Route: 048
  5. SOLIAN [Suspect]
     Route: 048
  6. CALCITE D [Suspect]
     Dosage: TEXT:1 DF-FREQ:DAILY
     Route: 048
  7. ACTONEL [Concomitant]
     Route: 048
  8. FOLIC ACID [Concomitant]
     Route: 048
  9. DITROPAN [Concomitant]
  10. ZOPICLONE [Concomitant]

REACTIONS (2)
  - CHOLESTASIS [None]
  - CYTOLYTIC HEPATITIS [None]
